FAERS Safety Report 4920235-9 (Version None)
Quarter: 2006Q1

REPORT INFORMATION
  Report Type: 
  Country: None (occurrence: None)
  Receive Date: 20060113
  Receipt Date: 20050929
  Transmission Date: 20060701
  Serious: No
  Sender: FDA-Public Use
  Company Number: 2005SP003286

PATIENT
  Age: 72 Year
  Sex: Male

DRUGS (4)
  1. LUNESTA [Suspect]
     Indication: MIDDLE INSOMNIA
     Dosage: 2 MG;HS;ORAL
     Route: 048
     Dates: start: 20050801
  2. ATORVASTATIN CALCIUM [Concomitant]
  3. UROXATRAL [Concomitant]
  4. AMBIEN [Concomitant]

REACTIONS (1)
  - DRUG EFFECT DECREASED [None]
